FAERS Safety Report 6489999-X (Version None)
Quarter: 2009Q4

REPORT INFORMATION
  Report Type: 
  Country: None (occurrence: None)
  Receive Date: 20091211
  Receipt Date: 20091130
  Transmission Date: 20100525
  Serious: Yes (Other)
  Sender: FDA-Public Use
  Company Number: IE-JNJFOC-20091200074

PATIENT
  Age: 48 Year
  Sex: Male
  Weight: 115.5 kg

DRUGS (2)
  1. STELARA [Suspect]
     Route: 058
     Dates: end: 20090820
  2. STELARA [Suspect]
     Indication: DRUG USE FOR UNKNOWN INDICATION
     Route: 058
     Dates: end: 20090820

REACTIONS (1)
  - LOWER RESPIRATORY TRACT INFECTION [None]
